FAERS Safety Report 5850586-5 (Version None)
Quarter: 2008Q3

REPORT INFORMATION
  Report Type: 
  Country: None (occurrence: None)
  Receive Date: 20080820
  Receipt Date: 20080815
  Transmission Date: 20090109
  Serious: Yes (Death, Hospitalization)
  Sender: FDA-Public Use
  Company Number: NSADSS2002030267

PATIENT
  Sex: Female

DRUGS (6)
  1. CONCERTA [Suspect]
     Indication: ATTENTION DEFICIT/HYPERACTIVITY DISORDER
     Route: 048
     Dates: start: 20020201
  2. CEFTIN [Concomitant]
     Indication: INFLUENZA
     Route: 048
     Dates: start: 20020401
  3. ROCEPHIN [Concomitant]
     Indication: INFLUENZA
     Route: 041
     Dates: start: 20020401, end: 20020401
  4. ALBUTEROL [Concomitant]
     Indication: ASTHMA
  5. CLARITIN [Concomitant]
     Indication: ASTHMA
  6. FLOVENT [Concomitant]
     Indication: ASTHMA

REACTIONS (15)
  - ACUTE SINUSITIS [None]
  - ALANINE AMINOTRANSFERASE INCREASED [None]
  - ASPARTATE AMINOTRANSFERASE INCREASED [None]
  - BLOOD GLUCOSE [None]
  - BLOOD GLUCOSE INCREASED [None]
  - CARDIAC ARREST [None]
  - DRUG LEVEL INCREASED [None]
  - DRUG TOXICITY [None]
  - HEART INJURY [None]
  - INFLUENZA [None]
  - MYALGIA [None]
  - OTITIS MEDIA CHRONIC [None]
  - PYREXIA [None]
  - RESPIRATORY ARREST [None]
  - VOMITING [None]
